FAERS Safety Report 19880176 (Version 18)
Quarter: 2022Q3

REPORT INFORMATION
  Report Type: Report from Study
  Country: IL (occurrence: IL)
  Receive Date: 20210925
  Receipt Date: 20220812
  Transmission Date: 20221027
  Serious: Yes (Hospitalization)
  Sender: FDA-Public Use
  Company Number: IL-ABBVIE-21K-082-4090447-00

PATIENT
  Sex: Female

DRUGS (13)
  1. CARBIDOPA\LEVODOPA [Suspect]
     Active Substance: CARBIDOPA\LEVODOPA
     Indication: Parkinson^s disease
     Route: 050
     Dates: start: 20210801, end: 2021
  2. CARBIDOPA\LEVODOPA [Suspect]
     Active Substance: CARBIDOPA\LEVODOPA
     Dosage: MORNING DOSAGE(ML)  2.5; CONTINUOUS DOSAGE (ML/H)  1.7; EXTRA DOSAGE (ML)  0.7
     Route: 050
     Dates: start: 2021, end: 2021
  3. CARBIDOPA\LEVODOPA [Suspect]
     Active Substance: CARBIDOPA\LEVODOPA
     Dosage: MORNING DOSAGE(ML) 3.5; CONTINUOUS DOSAGE (ML/H) 1.9; EXTRA DOSAGE (ML) 0.7
     Route: 050
     Dates: start: 2021, end: 2021
  4. CARBIDOPA\LEVODOPA [Suspect]
     Active Substance: CARBIDOPA\LEVODOPA
     Dosage: MORNING DOSAGE(ML) 3.5; CONTINUOUS DOSAGE (ML/H) 1.2; EXTRA DOSAGE (ML) 0.7
     Route: 050
     Dates: start: 2021, end: 2021
  5. CARBIDOPA\LEVODOPA [Suspect]
     Active Substance: CARBIDOPA\LEVODOPA
     Dosage: M.D (ML) 3.5,  C.D (ML/H) 1.4 , E.D (ML) 1.0 ?DOSE INCREASED
     Route: 050
     Dates: start: 2021, end: 2021
  6. CARBIDOPA\LEVODOPA [Suspect]
     Active Substance: CARBIDOPA\LEVODOPA
     Dosage: CONTINUOUS DOSAGE (ML/H) 1.6
     Route: 050
     Dates: start: 2021, end: 20220221
  7. CARBIDOPA\LEVODOPA [Suspect]
     Active Substance: CARBIDOPA\LEVODOPA
     Dosage: CONTINUOUS DOSAGE 1.8 (ML/HR)
     Route: 050
     Dates: start: 20220221, end: 2022
  8. CARBIDOPA\LEVODOPA [Suspect]
     Active Substance: CARBIDOPA\LEVODOPA
     Dosage: MORNING DOSE(ML)  3.5, CONTINUOUS DOSE(ML/HR) 1.8, EXTRA DOSE(ML) 0.7
     Route: 050
     Dates: start: 2022, end: 2022
  9. CARBIDOPA\LEVODOPA [Suspect]
     Active Substance: CARBIDOPA\LEVODOPA
     Dosage: CONTINUOUS DOSE WAS REDUCED FROM 1.8 TO 1.6
     Route: 050
     Dates: start: 2022
  10. CARBIDOPA\LEVODOPA [Suspect]
     Active Substance: CARBIDOPA\LEVODOPA
     Dosage: MORNING DOSE 3.5ML , CONTINUOUS DOSE 1.6ML/HR , EXTRA DOSE 0.7ML PER DOSE
     Route: 050
  11. CANNABIS SATIVA SUBSP. INDICA TOP [Concomitant]
     Active Substance: CANNABIS SATIVA SUBSP. INDICA TOP
     Indication: Back pain
     Dosage: ONE DROP
  12. CANNABIS SATIVA SUBSP. INDICA TOP [Concomitant]
     Active Substance: CANNABIS SATIVA SUBSP. INDICA TOP
     Dosage: TWO DROP
  13. CANNABIS SATIVA SUBSP. INDICA TOP [Concomitant]
     Active Substance: CANNABIS SATIVA SUBSP. INDICA TOP
     Dosage: ONE DROP

REACTIONS (24)
  - Urinary tract infection [Recovering/Resolving]
  - Aphasia [Unknown]
  - Back pain [Unknown]
  - Allergic cough [Unknown]
  - Neck pain [Not Recovered/Not Resolved]
  - Fatigue [Unknown]
  - Gait disturbance [Unknown]
  - Confusional state [Recovered/Resolved]
  - Confusional state [Recovered/Resolved]
  - Dizziness [Recovered/Resolved]
  - Stoma site haemorrhage [Unknown]
  - Stoma site hypergranulation [Unknown]
  - Stoma site discharge [Unknown]
  - Constipation [Unknown]
  - Blood pressure decreased [Unknown]
  - Pain [Unknown]
  - On and off phenomenon [Unknown]
  - Hallucination [Recovered/Resolved]
  - Hallucination [Unknown]
  - Dysphagia [Unknown]
  - Confusional state [Unknown]
  - Pain [Unknown]
  - Blood pressure orthostatic abnormal [Unknown]
  - Oropharyngeal discomfort [Unknown]

NARRATIVE: CASE EVENT DATE: 20210101
